FAERS Safety Report 17362660 (Version 1)
Quarter: 2020Q1

REPORT INFORMATION
  Report Type: Spontaneous
  Country: CA (occurrence: CA)
  Receive Date: 20200203
  Receipt Date: 20200203
  Transmission Date: 20200409
  Serious: Yes (Other)
  Sender: FDA-Public Use
  Company Number: CA-TEVA-2020-CA-1178079

PATIENT
  Sex: Male

DRUGS (17)
  1. NAPROXEN. [Suspect]
     Active Substance: NAPROXEN
     Indication: PRODUCT USED FOR UNKNOWN INDICATION
     Route: 065
  2. COVERSYL [PERINDOPRIL ERBUMINE] [Concomitant]
     Active Substance: PERINDOPRIL ERBUMINE
  3. ASPIRIN [ACETYLSALICYLIC ACID] [Concomitant]
     Active Substance: ASPIRIN
  4. BUDESONIDE. [Concomitant]
     Active Substance: BUDESONIDE
  5. ROSUVASTATIN CALCIUM. [Concomitant]
     Active Substance: ROSUVASTATIN CALCIUM
  6. METOPROLOL. [Concomitant]
     Active Substance: METOPROLOL
  7. BRILINTA [Concomitant]
     Active Substance: TICAGRELOR
  8. ROSUVASTATIN. [Concomitant]
     Active Substance: ROSUVASTATIN
  9. BISOPROLOL [Concomitant]
     Active Substance: BISOPROLOL
  10. NITROGLYCERIN. [Concomitant]
     Active Substance: NITROGLYCERIN
  11. CIPROFLOXACIN. [Suspect]
     Active Substance: CIPROFLOXACIN
     Indication: PRODUCT USED FOR UNKNOWN INDICATION
     Dosage: 500 MILLIGRAM DAILY;
     Route: 065
  12. INFLIXIMAB [Suspect]
     Active Substance: INFLIXIMAB
     Indication: COLITIS ULCERATIVE
     Route: 042
  13. AMIODARONE [Concomitant]
     Active Substance: AMIODARONE
  14. AZATHIOPRINE. [Concomitant]
     Active Substance: AZATHIOPRINE
  15. FLOMAX [Concomitant]
     Active Substance: TAMSULOSIN HYDROCHLORIDE
  16. CLOPIDOGREL [Concomitant]
     Active Substance: CLOPIDOGREL BISULFATE
  17. PANTOPRAZOLE [Concomitant]
     Active Substance: PANTOPRAZOLE

REACTIONS (2)
  - Contraindicated product administered [Unknown]
  - Ulcer haemorrhage [Unknown]
